FAERS Safety Report 5824404-5 (Version None)
Quarter: 2008Q3

REPORT INFORMATION
  Report Type: 
  Country: None (occurrence: None)
  Receive Date: 20080728
  Receipt Date: 20080722
  Transmission Date: 20090109
  Serious: Yes (Other)
  Sender: FDA-Public Use
  Company Number: A0739648A

PATIENT
  Age: 52 Year
  Sex: Male
  Weight: 111.8 kg

DRUGS (3)
  1. AVANDIA [Suspect]
     Dosage: 8MG PER DAY
     Route: 048
     Dates: start: 20060501, end: 20070501
  2. METFORMIN [Concomitant]
     Dates: start: 20020201
  3. GLUCOTROL [Concomitant]
     Dates: start: 20030401

REACTIONS (2)
  - CARDIAC FAILURE CONGESTIVE [None]
  - CARDIAC HYPERTROPHY [None]
